FAERS Safety Report 5806454-8 (Version None)
Quarter: 2008Q3

REPORT INFORMATION
  Report Type: 
  Country: None (occurrence: None)
  Receive Date: 20080710
  Receipt Date: 20080629
  Transmission Date: 20090109
  Serious: Yes (Other)
  Sender: FDA-Public Use
  Company Number: US-PFIZER INC-2008054905

PATIENT
  Sex: Female
  Weight: 70.3 kg

DRUGS (3)
  1. LYRICA [Suspect]
     Indication: HEADACHE
     Dates: start: 20080101, end: 20080624
  2. TRAZODONE HCL [Interacting]
     Indication: INSOMNIA
     Dosage: TEXT:PRN
  3. MULTI-VITAMINS [Concomitant]

REACTIONS (14)
  - ACNE [None]
  - ACNE CYSTIC [None]
  - DERMATITIS [None]
  - DRUG INTERACTION [None]
  - DRUG WITHDRAWAL SYNDROME [None]
  - HEADACHE [None]
  - IRRITABILITY [None]
  - LYMPHOMATOID PAPULOSIS [None]
  - MALAISE [None]
  - PRURITUS [None]
  - SKIN DISORDER [None]
  - SKIN EXFOLIATION [None]
  - SKIN NODULE [None]
  - SOMNOLENCE [None]
